FAERS Safety Report 13617647 (Version 1)
Quarter: 2017Q2

REPORT INFORMATION
  Report Type: Report from Study
  Country: JP (occurrence: JP)
  Receive Date: 20170606
  Receipt Date: 20170606
  Transmission Date: 20170830
  Serious: Yes (Hospitalization, Other)
  Sender: FDA-Public Use
  Company Number: JP-ELI_LILLY_AND_COMPANY-JP201705012438

PATIENT
  Age: 75 Year
  Sex: Male
  Weight: 56 kg

DRUGS (18)
  1. PRASUGREL HYDROCHLORIDE [Suspect]
     Active Substance: PRASUGREL HYDROCHLORIDE
     Dosage: 3.75 MG, DAILY
     Route: 048
     Dates: start: 20160521
  2. HEPARIN [Concomitant]
     Active Substance: HEPARIN SODIUM
     Dosage: 10000 IU, UNK
     Route: 042
     Dates: start: 20160520, end: 20160521
  3. ISOSORBIDE DINITRATE. [Concomitant]
     Active Substance: ISOSORBIDE DINITRATE
     Dosage: UNK
     Route: 022
     Dates: start: 20160520, end: 20160520
  4. OYPALOMIN [Concomitant]
     Active Substance: IOPAMIDOL
     Dosage: UNK
     Route: 022
     Dates: start: 20160629, end: 20160629
  5. PRASUGREL HYDROCHLORIDE [Suspect]
     Active Substance: PRASUGREL HYDROCHLORIDE
     Indication: ACUTE MYOCARDIAL INFARCTION
     Dosage: 20 MG, SINGLE
     Route: 048
     Dates: start: 20160520, end: 20160520
  6. ISOSORBIDE DINITRATE. [Concomitant]
     Active Substance: ISOSORBIDE DINITRATE
     Dosage: UNK
     Route: 022
     Dates: start: 20160629, end: 20160629
  7. SIGMART [Concomitant]
     Active Substance: NICORANDIL
     Dosage: UNK
     Route: 042
     Dates: start: 20160629, end: 20160629
  8. OYPALOMIN [Concomitant]
     Active Substance: IOPAMIDOL
     Dosage: UNK
     Route: 022
     Dates: start: 20160520, end: 20160520
  9. NICORANDIL [Concomitant]
     Active Substance: NICORANDIL
     Dosage: UNK
     Route: 048
     Dates: start: 20160522
  10. HEPARIN [Concomitant]
     Active Substance: HEPARIN SODIUM
     Dosage: 5000 IU, DAILY
     Route: 042
     Dates: start: 20160629, end: 20160629
  11. XYLOCAINE                          /00033402/ [Concomitant]
     Active Substance: LIDOCAINE HYDROCHLORIDE
     Dosage: UNK
     Route: 058
     Dates: start: 20160629, end: 20160629
  12. ENALAPRIL MALEATE. [Concomitant]
     Active Substance: ENALAPRIL MALEATE
     Dosage: UNK
     Route: 048
     Dates: start: 20160521
  13. NEXIUM [Concomitant]
     Active Substance: ESOMEPRAZOLE MAGNESIUM
     Dosage: UNK
     Route: 048
     Dates: start: 20160521
  14. ASPIRIN                            /00002701/ [Concomitant]
     Active Substance: ASPIRIN
     Dosage: 100 MG, DAILY
     Route: 048
     Dates: start: 20160520
  15. CRESTOR [Concomitant]
     Active Substance: ROSUVASTATIN CALCIUM
     Dosage: UNK
     Route: 048
     Dates: start: 20160521
  16. SIGMART [Concomitant]
     Active Substance: NICORANDIL
     Dosage: UNK
     Route: 042
     Dates: start: 20160520, end: 20160521
  17. ARTIST [Concomitant]
     Active Substance: CARVEDILOL
     Dosage: UNK
     Route: 048
     Dates: start: 20160521
  18. XYLOCAINE                          /00033402/ [Concomitant]
     Active Substance: LIDOCAINE HYDROCHLORIDE
     Dosage: UNK
     Route: 058
     Dates: start: 20160520, end: 20160520

REACTIONS (2)
  - Thrombotic cerebral infarction [Recovered/Resolved]
  - Atherosclerotic plaque rupture [Unknown]

NARRATIVE: CASE EVENT DATE: 20160703
